FAERS Safety Report 16440336 (Version 1)
Quarter: 2019Q2

REPORT INFORMATION
  Report Type: Spontaneous
  Country: GB (occurrence: GB)
  Receive Date: 20190617
  Receipt Date: 20190617
  Transmission Date: 20190711
  Serious: Yes (Other)
  Sender: FDA-Public Use
  Company Number: GB-MYLANLABS-2019M1055893

PATIENT
  Age: 3 Decade
  Sex: Male

DRUGS (10)
  1. RISPERIDONE. [Concomitant]
     Active Substance: RISPERIDONE
     Indication: SCHIZOPHRENIA
     Route: 065
  2. ARIPIPRAZOLE. [Concomitant]
     Active Substance: ARIPIPRAZOLE
     Indication: SCHIZOPHRENIA
     Route: 065
  3. CLOZAPINE. [Suspect]
     Active Substance: CLOZAPINE
     Dosage: 300 MILLIGRAM, QD
  4. OLANZAPINE. [Concomitant]
     Active Substance: OLANZAPINE
     Indication: SCHIZOPHRENIA
     Dosage: UNK
     Route: 065
  5. CLOZAPINE. [Suspect]
     Active Substance: CLOZAPINE
     Indication: SCHIZOPHRENIA
     Dosage: 900 MILLIGRAM, DOSE WAS INCREASED IN THE COMMUNITY TO A MAXIMUM OF 900MG DAILY OVER SIX MONTHS
  6. ARIPIPRAZOLE. [Concomitant]
     Active Substance: ARIPIPRAZOLE
     Dosage: 15 MILLIGRAM
  7. LAMOTRIGINE. [Concomitant]
     Active Substance: LAMOTRIGINE
     Indication: SCHIZOPHRENIA
     Dosage: UNK
     Route: 065
  8. CLOZAPINE. [Suspect]
     Active Substance: CLOZAPINE
     Dosage: 475 MILLIGRAM, QD
  9. FLUVOXAMINE [Suspect]
     Active Substance: FLUVOXAMINE
     Indication: SCHIZOPHRENIA
     Dosage: 50 MILLIGRAM, QD
     Route: 065
  10. FLUVOXAMINE [Suspect]
     Active Substance: FLUVOXAMINE
     Dosage: 25 MILLIGRAM, QD

REACTIONS (6)
  - Salivary hypersecretion [Unknown]
  - Sedation [Unknown]
  - Myoclonus [Unknown]
  - Labelled drug-drug interaction medication error [Unknown]
  - Weight increased [Unknown]
  - Drug ineffective [Unknown]
